FAERS Safety Report 9324153 (Version 3)
Quarter: 2013Q2

REPORT INFORMATION
  Report Type: Spontaneous
  Country: JP (occurrence: JP)
  Receive Date: 20130603
  Receipt Date: 20130620
  Transmission Date: 20140414
  Serious: Yes (Hospitalization, Other)
  Sender: FDA-Public Use
  Company Number: JP-UCBSA-087335

PATIENT
  Age: 53 Year
  Sex: Female
  Weight: 38.1 kg

DRUGS (12)
  1. PAXIL [Concomitant]
     Indication: DEPRESSION
     Route: 048
     Dates: start: 2006
  2. RIMATIL [Concomitant]
     Indication: RHEUMATOID ARTHRITIS
     Dosage: 300 MG
     Route: 048
     Dates: start: 200308
  3. MICAMLO [Concomitant]
     Indication: ISCHAEMIC CARDIOMYOPATHY
     Route: 048
     Dates: start: 2012
  4. MICAMLO [Concomitant]
     Indication: ISCHAEMIC CARDIOMYOPATHY
     Route: 048
     Dates: start: 2012
  5. BAYASPIRIN [Concomitant]
     Indication: ISCHAEMIC CARDIOMYOPATHY
     Route: 048
     Dates: start: 2004
  6. PANALDINE [Concomitant]
     Indication: ISCHAEMIC CARDIOMYOPATHY
     Route: 048
     Dates: start: 2004
  7. CRESTOR [Concomitant]
     Indication: ISCHAEMIC CARDIOMYOPATHY
     Route: 048
     Dates: start: 2011
  8. BONOTEO [Concomitant]
     Indication: HYPONATRAEMIA
     Route: 048
     Dates: start: 2012
  9. CIMZIA [Suspect]
     Indication: RHEUMATOID ARTHRITIS
     Dosage: 200 MG SYRINGE
     Route: 058
     Dates: start: 20130425
  10. SAMSCA [Suspect]
     Indication: CARDIAC FAILURE
     Dosage: 7.5 MG
     Route: 048
     Dates: start: 20130510, end: 20130516
  11. SAMSCA [Suspect]
     Indication: HYPONATRAEMIA
     Dosage: 7.5 MG
     Route: 048
     Dates: start: 20130510, end: 20130516
  12. SAMSCA [Suspect]
     Indication: ISCHAEMIC CARDIOMYOPATHY
     Dosage: 7.5 MG
     Route: 048
     Dates: start: 20130510, end: 20130516

REACTIONS (6)
  - Cardiac failure [Recovering/Resolving]
  - Delirium [Recovering/Resolving]
  - Anger [Recovering/Resolving]
  - Hallucination, auditory [Unknown]
  - Head injury [Unknown]
  - Fall [Recovered/Resolved]
